FAERS Safety Report 9559678 (Version 1)
Quarter: 2013Q3

REPORT INFORMATION
  Report Type: Other
  Country: US (occurrence: US)
  Receive Date: 20130927
  Receipt Date: 20130927
  Transmission Date: 20140515
  Serious: Yes (Death)
  Sender: FDA-Public Use
  Company Number: US-SHIRE-ALL1-2013-06537

PATIENT
  Age: 80 Year
  Sex: Male

DRUGS (1)
  1. PENTASA [Suspect]
     Indication: CROHN^S DISEASE
     Dosage: 1500 MG (THREE 500 MG), 3X/DAY:TID
     Route: 048

REACTIONS (2)
  - Death [Fatal]
  - Off label use [Unknown]
